FAERS Safety Report 13257457 (Version 5)
Quarter: 2017Q4

REPORT INFORMATION
  Report Type: Report from Study
  Country: HU (occurrence: HU)
  Receive Date: 20170221
  Receipt Date: 20171106
  Transmission Date: 20180320
  Serious: Yes (Death, Life-Threatening, Hospitalization, Other)
  Sender: FDA-Public Use
  Company Number: HU-ARIAD PHARMACEUTICALS, INC-2017HU007741

PATIENT
  Sex: Male
  Weight: 88 kg

DRUGS (32)
  1. DEXDOR [Concomitant]
     Active Substance: DEXMEDETOMIDINE HYDROCHLORIDE
     Indication: ABDOMINAL PAIN UPPER
     Dosage: UNK
     Route: 042
     Dates: start: 20170210, end: 20170212
  2. HALOPERIDOL. [Concomitant]
     Active Substance: HALOPERIDOL
     Indication: ABDOMINAL PAIN UPPER
     Dosage: UNK
     Route: 042
     Dates: start: 20170210, end: 20170210
  3. MANNISOL [Concomitant]
     Indication: SEPSIS
     Dosage: UNK
     Route: 042
     Dates: start: 20170211
  4. NICOTINE TRANSDERMAL SYSTEM [Concomitant]
     Active Substance: NICOTINE
     Indication: PANCREATITIS ACUTE
     Dosage: UNK
     Route: 062
     Dates: start: 20170211
  5. NITRO POHL [Concomitant]
     Indication: HYPERTENSION
     Dosage: UNK
     Route: 042
     Dates: start: 20170210, end: 20170212
  6. CONTRAMAL [Concomitant]
     Active Substance: TRAMADOL HYDROCHLORIDE
     Indication: PANCREATITIS ACUTE
     Dosage: UNK
     Route: 042
     Dates: start: 20170210
  7. CONTROLOC [Concomitant]
     Active Substance: PANTOPRAZOLE SODIUM
     Indication: PROPHYLAXIS AGAINST GASTROINTESTINAL ULCER
     Dosage: UNK
     Route: 042
     Dates: start: 20170210
  8. ALGOPYRIN [Concomitant]
     Active Substance: METAMIZOLE SODIUM
     Indication: PANCREATITIS ACUTE
     Dosage: UNK
     Route: 042
     Dates: start: 20170210
  9. ARTERENOL [Concomitant]
     Active Substance: NOREPINEPHRINE HYDROCHLORIDE, (+/-)-
     Indication: SEPSIS
     Dosage: UNK
     Route: 042
     Dates: start: 20170211
  10. FURON [Concomitant]
     Active Substance: FUROSEMIDE
     Indication: SEPSIS
     Dosage: UNK
     Route: 042
     Dates: start: 20170211
  11. EBRANTIL [Concomitant]
     Active Substance: URAPIDIL
     Indication: HYPERTENSION
     Dosage: UNK
     Route: 042
     Dates: start: 20170210, end: 20170212
  12. PERINEVA [Concomitant]
     Active Substance: PERINDOPRIL ERBUMINE
     Indication: HYPERTENSION
     Dosage: UNK
     Route: 048
     Dates: start: 20160704, end: 20170208
  13. ASPIRIN PROTECT [Concomitant]
     Active Substance: ASPIRIN
     Indication: PERIPHERAL ARTERIAL OCCLUSIVE DISEASE
     Dosage: UNK
     Route: 048
     Dates: start: 20170113
  14. RIVOTRIL [Concomitant]
     Active Substance: CLONAZEPAM
     Indication: ABDOMINAL PAIN UPPER
     Dosage: UNK
     Route: 042
     Dates: start: 20170210, end: 20170210
  15. VENTER [Concomitant]
     Indication: PROPHYLAXIS AGAINST GASTROINTESTINAL ULCER
     Dosage: UNK
     Route: 050
     Dates: start: 20170211
  16. NOSPA [Concomitant]
     Indication: PANCREATITIS ACUTE
     Dosage: UNK
     Route: 042
     Dates: start: 20170210
  17. EMETRON [Concomitant]
     Indication: PANCREATITIS ACUTE
     Dosage: UNK
     Route: 042
     Dates: start: 20170210, end: 20170210
  18. HUMULIN R [Concomitant]
     Active Substance: INSULIN HUMAN
     Indication: PANCREATITIS ACUTE
     Dosage: UNK
     Route: 058
     Dates: start: 20170210, end: 20170210
  19. PONATINIB [Suspect]
     Active Substance: PONATINIB
     Indication: CHRONIC MYELOID LEUKAEMIA
     Dosage: 15 MG, QD
     Route: 048
     Dates: start: 20160704, end: 20170210
  20. QUAMATEL [Concomitant]
     Active Substance: FAMOTIDINE
     Indication: PEPTIC ULCER
     Dosage: UNK
     Route: 048
     Dates: start: 20160216, end: 20170210
  21. TIENAM [Concomitant]
     Active Substance: CILASTATIN SODIUM\IMIPENEM
     Indication: PANCREATITIS ACUTE
     Dosage: UNK
     Route: 042
     Dates: start: 20170210
  22. CERUCAL [Concomitant]
     Active Substance: METOCLOPRAMIDE HYDROCHLORIDE
     Indication: GASTROINTESTINAL HYPOMOTILITY
     Dosage: UNK
     Route: 042
     Dates: start: 20170210
  23. PROPOFOL. [Concomitant]
     Active Substance: PROPOFOL
     Indication: PANCREATITIS ACUTE
     Dosage: UNK
     Route: 042
     Dates: start: 20170210
  24. MORPHINE [Concomitant]
     Active Substance: MORPHINE
     Indication: PANCREATITIS ACUTE
     Dosage: UNK
     Route: 042
     Dates: start: 20170210
  25. XOMOLIX [Concomitant]
     Active Substance: DROPERIDOL
     Indication: PANCREATITIS ACUTE
     Dosage: UNK
     Route: 042
     Dates: start: 20170210, end: 20170212
  26. MILURIT [Concomitant]
     Active Substance: ALLOPURINOL
     Indication: HYPERURICAEMIA
     Dosage: UNK
     Route: 048
     Dates: start: 20160408
  27. CLEXANE [Concomitant]
     Active Substance: ENOXAPARIN SODIUM
     Indication: THROMBOSIS PROPHYLAXIS
     Dosage: UNK
     Route: 058
     Dates: start: 20170210
  28. ISOLYTE [Concomitant]
     Indication: PANCREATITIS ACUTE
     Dosage: UNK
     Route: 042
     Dates: start: 20170210
  29. AMINOVEN [Concomitant]
     Active Substance: AMINO ACIDS
     Indication: ABDOMINAL PAIN UPPER
     Dosage: UNK
     Route: 042
     Dates: start: 20170211
  30. COVEREX AS [Concomitant]
     Active Substance: PERINDOPRIL ARGININE
     Indication: HYPERTENSION
     Dosage: UNK
     Route: 048
     Dates: start: 20170209, end: 20170210
  31. TENSIOMIN [Concomitant]
     Active Substance: CAPTOPRIL
     Indication: HYPERTENSION
     Dosage: UNK
     Route: 048
     Dates: start: 20170209, end: 20170210
  32. BETALOC [Concomitant]
     Active Substance: METOPROLOL TARTRATE
     Indication: HYPERTENSION
     Dosage: UNK
     Route: 042
     Dates: start: 20170211, end: 20170212

REACTIONS (5)
  - Atrial flutter [Not Recovered/Not Resolved]
  - Pancreatitis acute [Not Recovered/Not Resolved]
  - Pneumonia aspiration [Not Recovered/Not Resolved]
  - Septic shock [Fatal]
  - Sepsis [Not Recovered/Not Resolved]

NARRATIVE: CASE EVENT DATE: 20170210
